FAERS Safety Report 14193338 (Version 1)
Quarter: 2017Q4

REPORT INFORMATION
  Report Type: Report from Study
  Country: JP (occurrence: JP)
  Receive Date: 20171115
  Receipt Date: 20171115
  Transmission Date: 20180321
  Serious: Yes (Other)
  Sender: FDA-Public Use
  Company Number: JP-BAUSCH-BL-2017-031479

PATIENT

DRUGS (5)
  1. CISPLATIN. [Suspect]
     Active Substance: CISPLATIN
     Dosage: COMBINATION OF 20-35 MG CISPLATIN WITH 2-5 ML LIPIODOL AND 500-1,000 MG 5-FU?EVERY 2 WEEKS AT THE OU
     Route: 013
  2. 5-FLUOROURACIL [Suspect]
     Active Substance: FLUOROURACIL
     Dosage: COMBINATION OF 20-35 MG CISPLATIN WITH 2-5 ML LIPIODOL AND 500-1,000 MG 5-FU?EVERY 2 WEEKS AT THE OU
     Route: 013
  3. CISPLATIN. [Suspect]
     Active Substance: CISPLATIN
     Indication: HEPATOCELLULAR CARCINOMA
     Dosage: CISPLATIN WITH LIPIODOL WAS INJECTED WITH 5-FU?ONCE A WEEK DURING THE FIRST 2 WEEKS OF ADMISSION
     Route: 013
  4. 5-FLUOROURACIL [Suspect]
     Active Substance: FLUOROURACIL
     Indication: HEPATOCELLULAR CARCINOMA
     Dosage: ON DAY 1 WITH CISPLATIN IN LIPIODOL FALLOWED BY 250MG 5-FU THROUGH THE RESERVOIR CATHETER
     Route: 013
  5. 5-FLUOROURACIL [Suspect]
     Active Substance: FLUOROURACIL
     Dosage: 1,250 MG WAS CONTINUOUSLY INFUSED USING A BALLOON PUMP
     Route: 013

REACTIONS (1)
  - Vascular pseudoaneurysm [Unknown]
